FAERS Safety Report 23513450 (Version 2)
Quarter: 2024Q1

REPORT INFORMATION
  Report Type: Spontaneous
  Country: ES (occurrence: ES)
  Receive Date: 20240212
  Receipt Date: 20240216
  Transmission Date: 20240409
  Serious: Yes (Other)
  Sender: FDA-Public Use
  Company Number: ES-UCBSA-2024003723

PATIENT
  Sex: Male

DRUGS (7)
  1. ESLICARBAZEPINE [Suspect]
     Active Substance: ESLICARBAZEPINE
     Indication: Product used for unknown indication
     Dosage: UNK
     Route: 065
  2. LACOSAMIDE [Concomitant]
     Active Substance: LACOSAMIDE
     Indication: Epilepsy
     Dosage: 600 MILLIGRAM, QD (600 MILLIGRAM DAILY DURING 4 YEARS)
     Route: 065
  3. PANTOPRAZOLE [Concomitant]
     Active Substance: PANTOPRAZOLE
     Indication: Product used for unknown indication
     Dosage: 40 MILLIGRAM (40 MILLIGRAM GENERIC)
     Route: 065
  4. CLOBAZAM [Concomitant]
     Active Substance: CLOBAZAM
     Indication: Epilepsy
     Dosage: 30 MILLIGRAM, QD (30 MILLIGRAM DAILY DURING 2 YEARS)
     Route: 065
  5. FOLIC ACID [Concomitant]
     Active Substance: FOLIC ACID
     Indication: Product used for unknown indication
     Dosage: 5 MILLIGRAM, QD (5 MILLIGRAM DAILY DURING 6 YEARS)
     Route: 065
  6. VALPROIC ACID [Concomitant]
     Active Substance: VALPROIC ACID
     Indication: Epilepsy
     Dosage: 2400 MILLIGRAM, QD (2400 MILLIGRAM PER DAY DURING 6 YEARS)
     Route: 065
  7. VALPROIC ACID [Concomitant]
     Active Substance: VALPROIC ACID
     Dosage: 2000 MILLIGRAM, QD (2000 MILLIGRAM PER DAY)
     Route: 065

REACTIONS (2)
  - Pancreatitis [Unknown]
  - Drug reaction with eosinophilia and systemic symptoms [Unknown]
